FAERS Safety Report 6958662-0 (Version None)
Quarter: 2010Q3

REPORT INFORMATION
  Report Type: 
  Country: None (occurrence: None)
  Receive Date: 20100830
  Receipt Date: 20100830
  Transmission Date: 20110219
  Serious: Yes (Other)
  Sender: FDA-Public Use
  Company Number: None

PATIENT
  Age: 71 Year
  Sex: Male
  Weight: 111.1313 kg

DRUGS (1)
  1. ALONDRONATE 70MGM SUN PHAMACEUTICAL INDUSTRIES [Suspect]
     Dosage: ONE WEEKLY PO
     Route: 048

REACTIONS (1)
  - DRUG DISPENSING ERROR [None]
